FAERS Safety Report 6410522-X (Version None)
Quarter: 2009Q4

REPORT INFORMATION
  Report Type: 
  Country: None (occurrence: None)
  Receive Date: 20091022
  Receipt Date: 20091016
  Transmission Date: 20100525
  Serious: Yes (Other)
  Sender: FDA-Public Use
  Company Number: US-PURDUE-USA-2009-0040232

PATIENT
  Sex: Female

DRUGS (3)
  1. COLACE CAPSULES 100 MG [Suspect]
     Indication: CONSTIPATION
     Dosage: 1 CAPSL, DAILY
     Route: 048
     Dates: start: 20090916
  2. SYNTHROID [Concomitant]
     Indication: THYROID DISORDER
     Dosage: 1 TABLET, DAILY
     Route: 048
  3. DIPYRIDAMOLE [Concomitant]
     Indication: ANTICOAGULANT THERAPY
     Dosage: 3 TABLET, DAILY
     Route: 048

REACTIONS (5)
  - DIZZINESS [None]
  - GLAUCOMA [None]
  - MACULAR DEGENERATION [None]
  - VERTIGO [None]
  - VISION BLURRED [None]
